FAERS Safety Report 13979328 (Version 1)
Quarter: 2017Q3

REPORT INFORMATION
  Report Type: Spontaneous
  Country: US (occurrence: US)
  Receive Date: 20170914
  Receipt Date: 20170914
  Transmission Date: 20171128
  Serious: Yes (Other)
  Sender: FDA-Public Use
  Company Number: US-ASTELLAS-2017US024026

PATIENT
  Age: 75 Year
  Sex: Male

DRUGS (6)
  1. INDAPAMIDE. [Concomitant]
     Active Substance: INDAPAMIDE
     Indication: BLOOD PRESSURE MANAGEMENT
     Route: 065
  2. AMLODIPINE [Concomitant]
     Active Substance: AMLODIPINE BESYLATE
     Indication: BLOOD PRESSURE MANAGEMENT
     Route: 065
  3. INDAPAMIDE. [Concomitant]
     Active Substance: INDAPAMIDE
     Route: 065
  4. XTANDI [Suspect]
     Active Substance: ENZALUTAMIDE
     Route: 065
     Dates: start: 20170605
  5. XTANDI [Suspect]
     Active Substance: ENZALUTAMIDE
     Indication: PROSTATE CANCER METASTATIC
     Route: 065
  6. AMLODIPINE [Concomitant]
     Active Substance: AMLODIPINE BESYLATE
     Route: 065

REACTIONS (3)
  - Underdose [Unknown]
  - Blood pressure increased [Unknown]
  - Drug prescribing error [Unknown]

NARRATIVE: CASE EVENT DATE: 201706
